FAERS Safety Report 24282475 (Version 1)
Quarter: 2024Q3

REPORT INFORMATION
  Report Type: Spontaneous
  Country: US (occurrence: None)
  Receive Date: 20240903
  Receipt Date: 20240903
  Transmission Date: 20241017
  Serious: Yes (Death)
  Sender: Public
  Company Number: None

PATIENT
  Age: 76 Year
  Sex: Male
  Weight: 126.7 kg

DRUGS (1)
  1. DAPTOMYCIN [Suspect]
     Active Substance: DAPTOMYCIN
     Indication: Bacteraemia
     Dosage: 1000 MG DAILY INTRAVENOUS BOLUS ?
     Route: 040
     Dates: start: 20240826, end: 20240826

REACTIONS (3)
  - Pruritus [None]
  - Unresponsive to stimuli [None]
  - Cardio-respiratory arrest [None]

NARRATIVE: CASE EVENT DATE: 20240826
